FAERS Safety Report 4336795-5 (Version None)
Quarter: 2004Q2

REPORT INFORMATION
  Report Type: 
  Country: None (occurrence: None)
  Receive Date: 20040407
  Receipt Date: 20040324
  Transmission Date: 20050107
  Serious: Yes (Other)
  Sender: FDA-Public Use
  Company Number: USA040363058

PATIENT
  Sex: Female

DRUGS (2)
  1. STRATTERA [Suspect]
     Indication: ATTENTION DEFICIT/HYPERACTIVITY DISORDER
     Dosage: 25 MG DAY
     Dates: start: 20030101
  2. THYROID TAB [Concomitant]

REACTIONS (9)
  - ABDOMINAL PAIN UPPER [None]
  - ALOPECIA [None]
  - BRUXISM [None]
  - DECREASED APPETITE [None]
  - EMOTIONAL DISORDER [None]
  - FLUSHING [None]
  - INSOMNIA [None]
  - PALPITATIONS [None]
  - SYNCOPE [None]
